FAERS Safety Report 24692598 (Version 2)
Quarter: 2024Q4

REPORT INFORMATION
  Report Type: Report from Study
  Country: US (occurrence: US)
  Receive Date: 20241203
  Receipt Date: 20241216
  Transmission Date: 20250114
  Serious: Yes (Hospitalization)
  Sender: ALNYLAM PHARMACEUTICALS
  Company Number: US-ALNYLAM PHARMACEUTICALS, INC.-ALN-2024-006656

PATIENT

DRUGS (1)
  1. GIVLAARI [Suspect]
     Active Substance: GIVOSIRAN SODIUM
     Indication: Product used for unknown indication
     Dosage: 301.83 MILLIGRAM, MONTHLY
     Route: 058
     Dates: start: 20240130, end: 20240130

REACTIONS (4)
  - Porphyria acute [Unknown]
  - Pneumonia [Unknown]
  - Infection [Unknown]
  - Weight decreased [Unknown]
